FAERS Safety Report 14435147 (Version 1)
Quarter: 2018Q1

REPORT INFORMATION
  Report Type: Spontaneous
  Country: US (occurrence: US)
  Receive Date: 20180124
  Receipt Date: 20180124
  Transmission Date: 20180509
  Serious: Yes (Hospitalization, Disabling, Other)
  Sender: FDA-Public Use
  Company Number: None

PATIENT
  Age: 76 Year
  Sex: Male
  Weight: 96.16 kg

DRUGS (11)
  1. ZEGRID OTC [Concomitant]
     Active Substance: OMEPRAZOLE\SODIUM BICARBONATE
  2. VITAMIN C [Concomitant]
     Active Substance: ASCORBIC ACID
  3. COQ10 [Concomitant]
     Active Substance: UBIDECARENONE
  4. SIMVASTATIN. [Concomitant]
     Active Substance: SIMVASTATIN
  5. VITAMIN D [Concomitant]
     Active Substance: CHOLECALCIFEROL
  6. NADOLOL. [Concomitant]
     Active Substance: NADOLOL
  7. VITAMIN B12 [Concomitant]
     Active Substance: CYANOCOBALAMIN
  8. VITAMIN E [Concomitant]
     Active Substance: .ALPHA.-TOCOPHEROL
  9. ASA [Concomitant]
     Active Substance: ASPIRIN
  10. PROLIA [Suspect]
     Active Substance: DENOSUMAB
     Indication: OSTEOPENIA
     Dosage: DOSE - 1 INJECTION EVERY 6 MONTHS?FREQUENCY - EVERY 6 MONTHS
     Route: 058
     Dates: start: 2015, end: 2017
  11. ALLOPURINOL. [Concomitant]
     Active Substance: ALLOPURINOL

REACTIONS (3)
  - Femur fracture [None]
  - Stress fracture [None]
  - Pathological fracture [None]

NARRATIVE: CASE EVENT DATE: 20170106
